FAERS Safety Report 7452304-6 (Version None)
Quarter: 2011Q2

REPORT INFORMATION
  Report Type: 
  Country: None (occurrence: None)
  Receive Date: 20110502
  Receipt Date: 20100927
  Transmission Date: 20111010
  Serious: No
  Sender: FDA-Public Use
  Company Number: US-ASTRAZENECA-2010SE41315

PATIENT
  Sex: Female

DRUGS (3)
  1. NEXIUM [Suspect]
     Route: 048
  2. 4 GENERICS [Suspect]
     Route: 065
  3. PRILOSEC [Suspect]
     Route: 048

REACTIONS (9)
  - EATING DISORDER [None]
  - COUGH [None]
  - HYPERSENSITIVITY [None]
  - LUNG INFECTION [None]
  - GASTROOESOPHAGEAL REFLUX DISEASE [None]
  - OESOPHAGEAL STENOSIS [None]
  - HIATUS HERNIA [None]
  - INFECTION [None]
  - DRUG DOSE OMISSION [None]
